FAERS Safety Report 9417670 (Version 1)
Quarter: 2013Q3

REPORT INFORMATION
  Report Type: Report from Study
  Country: DE (occurrence: DE)
  Receive Date: 20130724
  Receipt Date: 20130724
  Transmission Date: 20140515
  Serious: Yes (Hospitalization)
  Sender: FDA-Public Use
  Company Number: DE-GLAXOSMITHKLINE-A1033988A

PATIENT
  Age: 46 Year
  Sex: Female
  Weight: 119 kg

DRUGS (4)
  1. BELIMUMAB [Suspect]
     Indication: SYSTEMIC LUPUS ERYTHEMATOSUS
     Dosage: 200MGML WEEKLY
     Route: 058
     Dates: start: 20130417
  2. PREDNISOLONE [Concomitant]
     Indication: SYSTEMIC LUPUS ERYTHEMATOSUS
     Dosage: 15MG PER DAY
     Route: 048
     Dates: start: 20130315
  3. AZATHIOPRINE [Concomitant]
     Indication: SYSTEMIC LUPUS ERYTHEMATOSUS
     Dosage: 50MG PER DAY
     Route: 048
     Dates: start: 201301
  4. MARCUMAR [Concomitant]

REACTIONS (1)
  - Agranulocytosis [Recovered/Resolved]
